FAERS Safety Report 6236352-X (Version None)
Quarter: 2009Q2

REPORT INFORMATION
  Report Type: 
  Country: None (occurrence: None)
  Receive Date: 20090619
  Receipt Date: 20090610
  Transmission Date: 20091009
  Serious: Yes (Other)
  Sender: FDA-Public Use
  Company Number: US-JNJFOC-20090604420

PATIENT
  Age: 35 Year
  Sex: Male

DRUGS (3)
  1. NEUTROGENA T/GEL THERAPEUTIC SHAMPOO ORIGINAL FORMULA [Suspect]
     Route: 061
  2. NEUTROGENA T/GEL THERAPEUTIC SHAMPOO ORIGINAL FORMULA [Suspect]
     Route: 061
  3. NEUTROGENA T/GEL THERAPEUTIC SHAMPOO ORIGINAL FORMULA [Suspect]
     Indication: DRUG USE FOR UNKNOWN INDICATION
     Route: 061

REACTIONS (2)
  - PRODUCT COUNTERFEIT [None]
  - PRURITUS [None]
